FAERS Safety Report 19741782 (Version 2)
Quarter: 2021Q4

REPORT INFORMATION
  Report Type: Spontaneous
  Country: IN (occurrence: IN)
  Receive Date: 20210825
  Receipt Date: 20211216
  Transmission Date: 20220303
  Serious: Yes (Hospitalization, Other)
  Sender: FDA-Public Use
  Company Number: IN-CIPLA (EU) LIMITED-2021IN05779

PATIENT

DRUGS (36)
  1. ANASTROZOLE [Suspect]
     Active Substance: ANASTROZOLE
     Indication: Breast cancer metastatic
     Dosage: UNK
     Route: 065
  2. GEMCITABINE [Suspect]
     Active Substance: GEMCITABINE
     Indication: Breast cancer metastatic
     Dosage: UNK, CYCLE 1 DAY1
     Route: 065
     Dates: start: 20210403
  3. GEMCITABINE [Suspect]
     Active Substance: GEMCITABINE
     Dosage: UNK, CYCLE 2 DAY1
     Route: 065
     Dates: start: 20210420
  4. GEMCITABINE [Suspect]
     Active Substance: GEMCITABINE
     Dosage: UNK, CYCLE 2 DAY8
     Route: 065
     Dates: start: 20210428
  5. GEMCITABINE [Suspect]
     Active Substance: GEMCITABINE
     Dosage: UNK, CYCLE 3 DAY1
     Route: 065
     Dates: start: 20210513
  6. GEMCITABINE [Suspect]
     Active Substance: GEMCITABINE
     Dosage: UNK, CYCLE 3 DAY8
     Route: 065
     Dates: start: 20210520
  7. CARBOPLATIN [Suspect]
     Active Substance: CARBOPLATIN
     Indication: Breast cancer metastatic
     Dosage: UNK, CYCLE 1 DAY1
     Route: 065
     Dates: start: 20210403
  8. CARBOPLATIN [Suspect]
     Active Substance: CARBOPLATIN
     Dosage: UNK, CYCLE 2 DAY1
     Route: 065
     Dates: start: 20210420
  9. CARBOPLATIN [Suspect]
     Active Substance: CARBOPLATIN
     Dosage: UNK, CYCLE 2 DAY8
     Route: 065
     Dates: start: 20210428
  10. CARBOPLATIN [Suspect]
     Active Substance: CARBOPLATIN
     Dosage: UNK, CYCLE 3 DAY1
     Route: 065
     Dates: start: 20210513
  11. CARBOPLATIN [Suspect]
     Active Substance: CARBOPLATIN
     Dosage: UNK, CYCLE 3 DAY8
     Route: 065
     Dates: start: 20210520
  12. PACLITAXEL [Suspect]
     Active Substance: PACLITAXEL
     Indication: Breast cancer metastatic
     Dosage: UNK
     Route: 065
  13. PACLITAXEL [Suspect]
     Active Substance: PACLITAXEL
     Dosage: UNK, WEEK 1
     Route: 065
     Dates: start: 20201021
  14. PACLITAXEL [Suspect]
     Active Substance: PACLITAXEL
     Dosage: UNK, WEEK 2
     Route: 065
     Dates: start: 20201029
  15. PACLITAXEL [Suspect]
     Active Substance: PACLITAXEL
     Dosage: UNK, WEEK 3
     Route: 065
     Dates: start: 20201105
  16. PACLITAXEL [Suspect]
     Active Substance: PACLITAXEL
     Dosage: UNK, WEEK 4
     Route: 065
     Dates: start: 20201124
  17. PACLITAXEL [Suspect]
     Active Substance: PACLITAXEL
     Dosage: UNK, WEEK 5
     Route: 065
     Dates: start: 20201203
  18. PACLITAXEL [Suspect]
     Active Substance: PACLITAXEL
     Dosage: UNK, WEEK 6
     Route: 065
     Dates: start: 20201210
  19. PACLITAXEL [Suspect]
     Active Substance: PACLITAXEL
     Dosage: UNK, WEEK 7
     Route: 065
     Dates: start: 20201218
  20. PACLITAXEL [Suspect]
     Active Substance: PACLITAXEL
     Dosage: UNK, WEEK 8
     Route: 065
     Dates: start: 20210102
  21. PACLITAXEL [Suspect]
     Active Substance: PACLITAXEL
     Dosage: UNK, WEEK 9
     Route: 065
     Dates: start: 20210109
  22. PACLITAXEL [Suspect]
     Active Substance: PACLITAXEL
     Dosage: UNK, WEEK 10
     Route: 065
     Dates: start: 20210115
  23. PACLITAXEL [Suspect]
     Active Substance: PACLITAXEL
     Dosage: UNK, WEEK 11
     Route: 065
     Dates: start: 20210123
  24. PACLITAXEL [Suspect]
     Active Substance: PACLITAXEL
     Dosage: UNK, WEEK 12
     Route: 065
     Dates: start: 20210130
  25. PACLITAXEL [Suspect]
     Active Substance: PACLITAXEL
     Dosage: UNK, WEEK 13
     Route: 065
     Dates: start: 20210213
  26. PACLITAXEL [Suspect]
     Active Substance: PACLITAXEL
     Dosage: UNK, WEEK 14
     Route: 065
     Dates: start: 20210222
  27. PACLITAXEL [Suspect]
     Active Substance: PACLITAXEL
     Dosage: UNK, WEEK 15
     Route: 065
     Dates: start: 20210301
  28. PACLITAXEL [Suspect]
     Active Substance: PACLITAXEL
     Dosage: UNK, WEEK 16
     Route: 065
     Dates: start: 20210308
  29. DOCETAXEL [Suspect]
     Active Substance: DOCETAXEL
     Indication: Breast cancer metastatic
     Dosage: UNK
     Route: 065
  30. EPIRUBICIN [Suspect]
     Active Substance: EPIRUBICIN
     Indication: Breast cancer metastatic
     Dosage: UNK, 1ST CYCLE
     Route: 065
     Dates: start: 20180511
  31. EPIRUBICIN [Suspect]
     Active Substance: EPIRUBICIN
     Dosage: UNK, 2ND CYCLE
     Route: 065
     Dates: start: 20180601
  32. EPIRUBICIN [Suspect]
     Active Substance: EPIRUBICIN
     Dosage: UNK, 3RD CYCLE
     Route: 065
  33. CYCLOPHOSPHAMIDE [Suspect]
     Active Substance: CYCLOPHOSPHAMIDE
     Indication: Breast cancer metastatic
     Dosage: UNK, 1ST CYCLE
     Route: 065
     Dates: start: 20180511
  34. CYCLOPHOSPHAMIDE [Suspect]
     Active Substance: CYCLOPHOSPHAMIDE
     Dosage: UNK, 2ND CYCLE
     Route: 065
     Dates: start: 20180601
  35. CYCLOPHOSPHAMIDE [Suspect]
     Active Substance: CYCLOPHOSPHAMIDE
     Dosage: UNK, 3RD CYCLE
     Route: 065
  36. LEVOTHYROXINE [Concomitant]
     Active Substance: LEVOTHYROXINE
     Indication: Hypothyroidism
     Dosage: 12.5 MCG, UNK
     Route: 065

REACTIONS (4)
  - Hepatic encephalopathy [Recovering/Resolving]
  - Hypercalcaemia of malignancy [Recovered/Resolved]
  - Thrombocytopenia [Unknown]
  - Liver function test increased [Unknown]

NARRATIVE: CASE EVENT DATE: 20210401
